FAERS Safety Report 9988276 (Version 2)
Quarter: 2014Q1

REPORT INFORMATION
  Report Type: Report from Study
  Country: US (occurrence: US)
  Receive Date: 20140310
  Receipt Date: 20140310
  Transmission Date: 20141002
  Serious: Yes (Hospitalization)
  Sender: FDA-Public Use
  Company Number: US-ROCHE-1159145

PATIENT
  Age: 71 Year
  Sex: Female

DRUGS (12)
  1. BEVACIZUMAB [Suspect]
     Indication: COLON CANCER
     Dosage: DATE OF LAST DOSE PRIOR TO SAE: 14/DEC/2012, 17/JAN/2013
     Route: 065
     Dates: start: 20120829
  2. BEVACIZUMAB [Suspect]
     Dosage: CYCLE 8, DATE OF LAST DOSE PRIOR TO SAE:25 MAY 2013
     Route: 065
     Dates: start: 20130117
  3. OXALIPLATIN [Suspect]
     Indication: COLON CANCER
     Dosage: DATE OF LAST DOSE PRIOR TO SAE: 14/DEC/2012, 17/JAN/2013
     Route: 065
     Dates: start: 20120912
  4. FLUOROURACIL [Suspect]
     Indication: COLON CANCER
     Dosage: DATE OF LAST DOSE PRIOR TO SAE: 25 MAY 2013
     Route: 040
     Dates: start: 20120913
  5. FLUOROURACIL [Suspect]
     Dosage: CONTINUOUS INFUSION
     Route: 042
     Dates: start: 20120913
  6. IRINOTECAN [Suspect]
     Indication: COLON CANCER
     Route: 065
  7. CO-AMOXICLAV [Concomitant]
     Route: 065
  8. GENTAMICIN [Concomitant]
     Route: 042
     Dates: start: 20121120
  9. ADCAL (CALCIUM CARBONATE) [Concomitant]
     Route: 065
  10. AMLODIPINE [Concomitant]
     Route: 065
     Dates: start: 20121213
  11. SANDO-K [Concomitant]
     Route: 065
  12. AMOXICILLIN [Concomitant]
     Route: 048

REACTIONS (5)
  - Pyrexia [Not Recovered/Not Resolved]
  - Infection [Not Recovered/Not Resolved]
  - Upper respiratory tract infection [Recovered/Resolved]
  - Pyrexia [Recovered/Resolved]
  - Pyrexia [Not Recovered/Not Resolved]
